FAERS Safety Report 13368832 (Version 1)
Quarter: 2017Q1

REPORT INFORMATION
  Report Type: Spontaneous
  Country: US (occurrence: US)
  Receive Date: 20170324
  Receipt Date: 20170324
  Transmission Date: 20170429
  Serious: Yes (Life-Threatening, Hospitalization, Other)
  Sender: FDA-Public Use
  Company Number: US-AUROBINDO-AUR-APL-2017-31267

PATIENT
  Age: 30 Year
  Sex: Female

DRUGS (5)
  1. FENTANYL. [Suspect]
     Active Substance: FENTANYL
     Indication: EPIDURAL ANALGESIA
     Dosage: UNK, AT A RATE OF 14 ML/HR WITH AN OPTION OF A 10ML BOLUS EVERY 15 MINUTES
     Route: 008
  2. EPINEPHRINE. [Suspect]
     Active Substance: EPINEPHRINE
     Indication: EPIDURAL ANALGESIA
     Dosage: UNK, 1:600,000; AT A RATE OF 14 ML/HR WITH AN OPTION OF A 10ML BOLUS EVERY 15 MINUTES
     Route: 008
  3. LIDOCAINE. [Suspect]
     Active Substance: LIDOCAINE
     Indication: PRODUCT USED FOR UNKNOWN INDICATION
     Dosage: 10 ML, GIVEN OVER ROUGHLY 10 SECONDS FOR A PERINEAL DOSE
     Route: 065
  4. BUPIVACAINE HYDROCHLORIDE. [Suspect]
     Active Substance: BUPIVACAINE HYDROCHLORIDE
     Indication: EPIDURAL ANALGESIA
     Dosage: UNK, AT A RATE OF 14 ML/HR WITH AN OPTION OF A 10ML BOLUS EVERY 15 MINUTES
     Route: 008
  5. FENTANYL. [Suspect]
     Active Substance: FENTANYL
     Dosage: 2 ML, 50 ?G/ML, GIVEN OVER ROUGHLY 10 SECONDS FOR A PERINEAL DOSE
     Route: 008

REACTIONS (8)
  - Hypotension [Recovered/Resolved]
  - Incorrect drug administration rate [Unknown]
  - Maternal exposure during pregnancy [Unknown]
  - Muscular weakness [Unknown]
  - Spinal anaesthesia [Unknown]
  - Dyspnoea [Unknown]
  - Nausea [Unknown]
  - Mental status changes [Unknown]
